FAERS Safety Report 7039776-6 (Version None)
Quarter: 2010Q4

REPORT INFORMATION
  Report Type: 
  Country: None (occurrence: None)
  Receive Date: 20101012
  Receipt Date: 20101001
  Transmission Date: 20110411
  Serious: Yes (Other)
  Sender: FDA-Public Use
  Company Number: US-JNJFOC-20100601575

PATIENT
  Sex: Female
  Weight: 79.38 kg

DRUGS (6)
  1. REMICADE [Suspect]
     Indication: CROHN'S DISEASE
     Route: 042
  2. REMICADE [Suspect]
     Route: 042
  3. SINGULAIR [Concomitant]
     Route: 048
  4. CLARINEX [Concomitant]
     Route: 045
  5. NASONEX [Concomitant]
     Route: 045
  6. ZANTAC [Concomitant]
     Route: 048

REACTIONS (3)
  - CAESAREAN SECTION [None]
  - DRUG EXPOSURE DURING PREGNANCY [None]
  - SINUSITIS [None]
